FAERS Safety Report 5917420-6 (Version None)
Quarter: 2008Q4

REPORT INFORMATION
  Report Type: 
  Country: None (occurrence: None)
  Receive Date: 20081014
  Receipt Date: 20081007
  Transmission Date: 20090506
  Serious: Yes (Other)
  Sender: FDA-Public Use
  Company Number: B0540490A

PATIENT
  Sex: Male

DRUGS (1)
  1. MALARONE [Suspect]
     Indication: MALARIA PROPHYLAXIS
     Dosage: 1TAB PER DAY
     Route: 048

REACTIONS (4)
  - INTRAOCULAR PRESSURE INCREASED [None]
  - MALAISE [None]
  - VISION BLURRED [None]
  - VISUAL ACUITY REDUCED [None]
